FAERS Safety Report 12739531 (Version 1)
Quarter: 2016Q3

REPORT INFORMATION
  Report Type: Spontaneous
  Country: CH (occurrence: CH)
  Receive Date: 20160913
  Receipt Date: 20160913
  Transmission Date: 20161109
  Serious: Yes (Congenital Anomaly)
  Sender: FDA-Public Use
  Company Number: PHHY2016CH123166

PATIENT
  Age: 0 Day
  Sex: Female
  Weight: 2.97 kg

DRUGS (4)
  1. PANADOL [Suspect]
     Active Substance: ACETAMINOPHEN
     Indication: FOETAL EXPOSURE DURING PREGNANCY
     Dosage: MATERNAL DOSE, 250 MG, QD
     Route: 064
     Dates: start: 201602, end: 201602
  2. FOCALIN XR [Suspect]
     Active Substance: DEXMETHYLPHENIDATE HYDROCHLORIDE
     Indication: PRODUCT USED FOR UNKNOWN INDICATION
     Dosage: MATERNAL DOSE 20 MG QD
     Route: 064
  3. OMEZOL [Suspect]
     Active Substance: OMEPRAZOLE
     Indication: FOETAL EXPOSURE DURING PREGNANCY
     Dosage: UNK
     Route: 064
     Dates: start: 20150924, end: 20150926
  4. BRUFEN [Suspect]
     Active Substance: IBUPROFEN
     Indication: FOETAL EXPOSURE DURING PREGNANCY
     Dosage: MATERNAL DOSE 400 MG, BID
     Route: 064
     Dates: start: 20150924, end: 20150926

REACTIONS (2)
  - Exposure during pregnancy [Recovered/Resolved]
  - Anomaly of external ear congenital [Unknown]

NARRATIVE: CASE EVENT DATE: 20160618
